FAERS Safety Report 23697929 (Version 4)
Quarter: 2025Q2

REPORT INFORMATION
  Report Type: Report from Study
  Country: CA (occurrence: CA)
  Receive Date: 20240402
  Receipt Date: 20250402
  Transmission Date: 20250717
  Serious: Yes (Hospitalization, Other)
  Sender: GLAXOSMITHKLINE
  Company Number: CA-GLAXOSMITHKLINE-CA2024022495

PATIENT

DRUGS (4)
  1. MEPOLIZUMAB [Suspect]
     Active Substance: MEPOLIZUMAB
     Indication: Asthma
     Dosage: 100 MG, Q4W
     Route: 058
     Dates: start: 20240130
  2. MONTELUKAST [Concomitant]
     Active Substance: MONTELUKAST
     Indication: Asthma
  3. VAGISIL ANTI ITCH ORIGINAL STRENGTH [Concomitant]
     Active Substance: BENZOCAINE\RESORCINOL
     Indication: Vaginal infection
  4. CLOTRIMAZOLE [Concomitant]
     Active Substance: CLOTRIMAZOLE
     Indication: Vaginal infection

REACTIONS (18)
  - Eosinophilic pneumonia [Unknown]
  - Pneumothorax [Unknown]
  - Diabetic complication [Unknown]
  - Blood glucose abnormal [Unknown]
  - Respiratory rate increased [Unknown]
  - Hospitalisation [Not Recovered/Not Resolved]
  - Pneumonia fungal [Unknown]
  - Knee arthroplasty [Unknown]
  - Dyspnoea [Not Recovered/Not Resolved]
  - Vaginal infection [Unknown]
  - Nausea [Unknown]
  - Myalgia [Unknown]
  - Urinary tract infection [Unknown]
  - Hypersomnia [Unknown]
  - Dry throat [Unknown]
  - Fatigue [Unknown]
  - Visual impairment [Unknown]
  - Malaise [Unknown]

NARRATIVE: CASE EVENT DATE: 20240216
